FAERS Safety Report 17138967 (Version 1)
Quarter: 2019Q4

REPORT INFORMATION
  Report Type: Spontaneous
  Country: US (occurrence: US)
  Receive Date: 20191211
  Receipt Date: 20191211
  Transmission Date: 20200122
  Serious: No
  Sender: FDA-Public Use
  Company Number: US-UCBSA-2016018996

PATIENT
  Age: 43 Year
  Sex: Male
  Weight: 102 kg

DRUGS (5)
  1. LOSARTAN. [Concomitant]
     Active Substance: LOSARTAN
     Indication: HYPERTENSION
     Dosage: 1 DF, ONCE DAILY (QD)
     Route: 048
     Dates: start: 2009
  2. FOLIC ACID. [Concomitant]
     Active Substance: FOLIC ACID
     Indication: PRODUCT USED FOR UNKNOWN INDICATION
     Dosage: 1 DF, ONCE DAILY (QD)
     Route: 048
     Dates: start: 2010
  3. NAPROXEN. [Concomitant]
     Active Substance: NAPROXEN
     Indication: SWELLING
     Dosage: 1 DF, 2X/DAY (BID)
     Route: 048
     Dates: start: 2010
  4. TRAMADOL. [Concomitant]
     Active Substance: TRAMADOL
     Indication: PAIN
     Dosage: 1-2 PO Q8H PRN
     Dates: start: 2010
  5. CIMZIA [Suspect]
     Active Substance: CERTOLIZUMAB PEGOL
     Indication: RHEUMATOID ARTHRITIS
     Dosage: 200 MG, UNK
     Route: 058
     Dates: start: 20160507

REACTIONS (3)
  - Pruritus [Not Recovered/Not Resolved]
  - Rash [Not Recovered/Not Resolved]
  - Peripheral swelling [Not Recovered/Not Resolved]

NARRATIVE: CASE EVENT DATE: 20160518
